FAERS Safety Report 4889655-5 (Version None)
Quarter: 2006Q1

REPORT INFORMATION
  Report Type: 
  Country: None (occurrence: None)
  Receive Date: 20060124
  Receipt Date: 20060123
  Transmission Date: 20060701
  Serious: Yes (Life-Threatening, Hospitalization)
  Sender: FDA-Public Use
  Company Number: NL-GLAXOSMITHKLINE-B0407600A

PATIENT
  Age: 4 Year
  Sex: Female

DRUGS (1)
  1. AMOXICILLIN AND CLAVULANATE POTASSIUM [Suspect]
     Indication: PROPHYLAXIS
     Dosage: 5ML THREE TIMES PER DAY
     Route: 065
     Dates: start: 20051101, end: 20051110

REACTIONS (4)
  - HYPERSENSITIVITY [None]
  - RASH MACULAR [None]
  - SWELLING [None]
  - URTICARIA [None]
